FAERS Safety Report 21167402 (Version 1)
Quarter: 2022Q3

REPORT INFORMATION
  Report Type: Spontaneous
  Country: US (occurrence: None)
  Receive Date: 20220803
  Receipt Date: 20220803
  Transmission Date: 20221026
  Serious: Yes (Life-Threatening, Hospitalization)
  Sender: FDA-Public Use
  Company Number: None

PATIENT
  Age: 28 Year
  Sex: Male
  Weight: 96.3 kg

DRUGS (7)
  1. DOXORUBICIN [Suspect]
     Active Substance: DOXORUBICIN
     Indication: Chemotherapy
     Dosage: OTHER FREQUENCY : ONCE EVERY 14 DAYS;?
     Route: 042
     Dates: start: 20220711, end: 20220802
  2. DOXORUBICIN [Suspect]
     Active Substance: DOXORUBICIN
     Indication: Hodgkin^s disease
  3. ABVD chemotherapy [Concomitant]
  4. VITAMINS [Concomitant]
     Active Substance: VITAMINS
  5. PROBIOTICS NOS [Concomitant]
     Active Substance: PROBIOTICS NOS
  6. Organic greens powder [Concomitant]
  7. OMEGA 3 [Concomitant]
     Active Substance: CAPSAICIN

REACTIONS (6)
  - Seizure [None]
  - Hypoxia [None]
  - Skin discolouration [None]
  - Tremor [None]
  - Confusional state [None]
  - Memory impairment [None]

NARRATIVE: CASE EVENT DATE: 20220801
